FAERS Safety Report 20961521 (Version 1)
Quarter: 2022Q2

REPORT INFORMATION
  Report Type: Spontaneous
  Country: CN (occurrence: CN)
  Receive Date: 20220615
  Receipt Date: 20220615
  Transmission Date: 20220721
  Serious: Yes (Hospitalization, Other)
  Sender: FDA-Public Use
  Company Number: CN-Accord-265926

PATIENT
  Age: 84 Year
  Sex: Male
  Weight: 70 kg

DRUGS (3)
  1. CISATRACURIUM [Interacting]
     Active Substance: CISATRACURIUM
     Indication: Acute respiratory distress syndrome
     Dosage: WITH 0.1 MG/KG TO PARALYZE THE MUSCLES
     Dates: start: 20210208
  2. MIDAZOLAM [Interacting]
     Active Substance: MIDAZOLAM
     Indication: Paralysis
     Dosage: CONTINUOUS INFUSION OF?MIDAZOLAM 3.43 (2.06-6.17) MG/KG.D
     Dates: start: 20210205
  3. REMIFENTANIL [Interacting]
     Active Substance: REMIFENTANIL
     Indication: Paralysis
     Dosage: CONTINUOUS INFUSION OF REMIFENTANIL 3.79 (3.43-8.57) UG/KG.H
     Dates: start: 20210205

REACTIONS (3)
  - Bradycardia [Unknown]
  - Drug interaction [Unknown]
  - Intensive care unit acquired weakness [Unknown]
